FAERS Safety Report 5699984-3 (Version None)
Quarter: 2008Q2

REPORT INFORMATION
  Report Type: 
  Country: None (occurrence: None)
  Receive Date: 20080410
  Receipt Date: 20080402
  Transmission Date: 20081010
  Serious: Yes (Other)
  Sender: FDA-Public Use
  Company Number: PHEH2008US03420

PATIENT
  Sex: Female

DRUGS (1)
  1. RECLAST [Suspect]
     Dosage: 5 MG, ONCE YEARLY

REACTIONS (4)
  - ARTHRALGIA [None]
  - DYSKINESIA [None]
  - JOINT SWELLING [None]
  - PAIN IN JAW [None]
